FAERS Safety Report 10153717 (Version 6)
Quarter: 2014Q4

REPORT INFORMATION
  Report Type: Report from Study
  Country: BR (occurrence: BR)
  Receive Date: 20140506
  Receipt Date: 20141210
  Transmission Date: 20150528
  Serious: Yes (Hospitalization)
  Sender: FDA-Public Use
  Company Number: BR-ROCHE-1189076

PATIENT
  Sex: Female
  Weight: 49 kg

DRUGS (12)
  1. ANGIPRESS (BRAZIL) [Concomitant]
     Dosage: 25/12.5 MG
     Route: 065
  2. BUSCOPAN [Concomitant]
     Active Substance: BUTYLSCOPOLAMINE BROMIDE
  3. MABTHERA [Suspect]
     Active Substance: RITUXIMAB
     Route: 042
     Dates: start: 20140103
  4. ETHINYL ESTRADIOL [Concomitant]
     Active Substance: ETHINYL ESTRADIOL
  5. NISULID [Concomitant]
     Active Substance: NIMESULIDE
     Indication: PAIN
  6. MABTHERA [Suspect]
     Active Substance: RITUXIMAB
     Route: 042
     Dates: start: 20130310
  7. PREDNISONE. [Concomitant]
     Active Substance: PREDNISONE
     Indication: PAIN
     Route: 065
  8. MABTHERA [Suspect]
     Active Substance: RITUXIMAB
     Indication: RHEUMATOID ARTHRITIS
     Route: 042
     Dates: start: 20120711, end: 20120726
  9. RIVOTRIL [Suspect]
     Active Substance: CLONAZEPAM
     Indication: PRODUCT USED FOR UNKNOWN INDICATION
     Route: 065
  10. DIMETICONE [Concomitant]
     Active Substance: DIMETHICONE
  11. OMEPRAZOLE. [Concomitant]
     Active Substance: OMEPRAZOLE
  12. DRAMAMINE [Concomitant]
     Active Substance: DIMENHYDRINATE

REACTIONS (13)
  - Drug ineffective [Unknown]
  - Asthenia [Unknown]
  - Urinary tract infection [Unknown]
  - Therapeutic response decreased [Unknown]
  - Dizziness [Unknown]
  - Pain in extremity [Not Recovered/Not Resolved]
  - Teeth brittle [Unknown]
  - Viral infection [Recovered/Resolved]
  - Pain [Not Recovered/Not Resolved]
  - Dehydration [Unknown]
  - Irritability [Unknown]
  - Arthralgia [Not Recovered/Not Resolved]
  - Nasopharyngitis [Recovering/Resolving]
